FAERS Safety Report 17745596 (Version 2)
Quarter: 2020Q2

REPORT INFORMATION
  Report Type: Spontaneous
  Country: US (occurrence: US)
  Receive Date: 20200505
  Receipt Date: 20200521
  Transmission Date: 20200714
  Serious: Yes (Other)
  Sender: FDA-Public Use
  Company Number: US-AMGEN-USASP2020069554

PATIENT
  Age: 74 Year
  Sex: Female
  Weight: 68.48 kg

DRUGS (3)
  1. PROLIA [Suspect]
     Active Substance: DENOSUMAB
     Indication: OSTEOPOROSIS
     Dosage: UNK
     Route: 065
  2. VITAMINE D [Concomitant]
     Active Substance: CHOLECALCIFEROL
     Dosage: 2000 UNK, QD
     Dates: start: 20180423, end: 20200406
  3. CALCIUM [Concomitant]
     Active Substance: CALCIUM
     Dosage: 600 MILLIGRAM, QD
     Route: 048
     Dates: start: 20180406, end: 20200406

REACTIONS (3)
  - Chronic kidney disease [Unknown]
  - Memory impairment [Unknown]
  - Vitamin D increased [Unknown]

NARRATIVE: CASE EVENT DATE: 2020
